FAERS Safety Report 7201214 (Version 3)
Quarter: 2012Q4

REPORT INFORMATION
  Report Type: 
  Country: CA (occurrence: CA)
  Receive Date: 20091204
  Receipt Date: 20121116
  Transmission Date: 20130627
  Serious: Yes (Other)
  Sender: FDA-Public Use
  Company Number: CA-ROCHE-GNE295324

PATIENT
  Age: 24 Year
  Sex: Female

DRUGS (15)
  1. OMALIZUMAB [Suspect]
     Indication: PRODUCT USED FOR UNKNOWN INDICATION
     Route: 065
  2. ALBUTEROL [Concomitant]
     Route: 065
  3. FLOVENT [Concomitant]
     Route: 065
  4. ADVAIR [Concomitant]
     Route: 065
  5. IPRATROPIUM BROMIDE [Concomitant]
     Route: 065
  6. MOMETASONE [Concomitant]
     Route: 065
  7. IMMUNOGLOBULIN [Concomitant]
  8. ALENDRONATE SODIUM [Concomitant]
  9. CETIRIZINE [Concomitant]
  10. OMEPRAZOLE [Concomitant]
  11. RANITIDINE [Concomitant]
  12. CITALOPRAM [Concomitant]
  13. CALCIUM [Concomitant]
  14. MULTIVITAMIN - UNSPECIFIED [Concomitant]
  15. VITAMIN D3 [Concomitant]

REACTIONS (3)
  - Differential white blood cell count abnormal [Unknown]
  - Neutrophilia [Recovered/Resolved]
  - Infection [Unknown]
